FAERS Safety Report 13400506 (Version 1)
Quarter: 2017Q2

REPORT INFORMATION
  Report Type: Spontaneous
  Country: BR (occurrence: BR)
  Receive Date: 20170404
  Receipt Date: 20170404
  Transmission Date: 20170830
  Serious: Yes (Other)
  Sender: FDA-Public Use
  Company Number: BR-009507513-1704BRA000088

PATIENT
  Age: 71 Year
  Sex: Female
  Weight: 70 kg

DRUGS (1)
  1. JANUVIA [Suspect]
     Active Substance: SITAGLIPTIN PHOSPHATE
     Indication: DIABETES MELLITUS
     Dosage: UNK, QAM
     Route: 048
     Dates: start: 20100414

REACTIONS (8)
  - Eye pain [Recovered/Resolved]
  - Ocular ischaemic syndrome [Not Recovered/Not Resolved]
  - Vision blurred [Recovered/Resolved]
  - Vision blurred [Recovering/Resolving]
  - Ocular hyperaemia [Recovered/Resolved]
  - Product quality issue [Unknown]
  - Headache [Recovered/Resolved]
  - Cataract [Recovered/Resolved]

NARRATIVE: CASE EVENT DATE: 2014
